FAERS Safety Report 10442579 (Version 1)
Quarter: 2014Q3

REPORT INFORMATION
  Report Type: Report from Study
  Country: BR (occurrence: BR)
  Receive Date: 20140909
  Receipt Date: 20140909
  Transmission Date: 20150326
  Serious: Yes (Other)
  Sender: FDA-Public Use
  Company Number: PHHY2014BR115425

PATIENT
  Age: 88 Year
  Sex: Female

DRUGS (11)
  1. EXELON PATCH [Suspect]
     Active Substance: RIVASTIGMINE
     Indication: DEMENTIA ALZHEIMER^S TYPE
     Dosage: 18MG/10CM2 ONE PATCH DAILY
     Route: 062
     Dates: start: 201404
  2. CITALOPRAM [Concomitant]
     Active Substance: CITALOPRAM HYDROBROMIDE
     Indication: DEPRESSION
     Dosage: 1 DF, DAILY
  3. LEVOID [Concomitant]
     Active Substance: LEVOTHYROXINE
     Dosage: 1 DF, DAILY
  4. LYRICA [Concomitant]
     Active Substance: PREGABALIN
     Indication: FIBROMYALGIA
     Dosage: 1 DF, QHS
  5. NEXIUM [Concomitant]
     Active Substance: ESOMEPRAZOLE MAGNESIUM
     Indication: GASTRIC DISORDER
     Dosage: 1 DF, QD
  6. RIVOTRIL [Concomitant]
     Active Substance: CLONAZEPAM
     Indication: SLEEP DISORDER
     Dosage: 1 DF, QHS
  7. DIOVAN HCT [Suspect]
     Active Substance: HYDROCHLOROTHIAZIDE\VALSARTAN
     Indication: HYPERTENSION
     Dosage: 1 DF, QD (IN THE MORNING)
  8. EBIX [Concomitant]
     Active Substance: MEMANTINE HYDROCHLORIDE
     Indication: GASTRIC DISORDER
     Dosage: 1 DF, QD (IN THE MORNING)
  9. EXELON PATCH [Suspect]
     Active Substance: RIVASTIGMINE
     Indication: MEMORY IMPAIRMENT
  10. QUETROS [Concomitant]
     Active Substance: QUETIAPINE
     Indication: DELIRIUM
     Dosage: 1 DF, QD (AT 8 O CLOCK)
     Dates: start: 201405
  11. CALCIUM + VITAMIN D3 [Concomitant]
     Indication: CALCIUM METABOLISM DISORDER
     Dosage: 1 DF, DAILY

REACTIONS (3)
  - Delirium [Unknown]
  - Choking [Unknown]
  - Crying [Unknown]

NARRATIVE: CASE EVENT DATE: 201404
